FAERS Safety Report 10471847 (Version 3)
Quarter: 2016Q2

REPORT INFORMATION
  Report Type: Report from Study
  Country: CA (occurrence: CA)
  Receive Date: 20140924
  Receipt Date: 20160607
  Transmission Date: 20160815
  Serious: Yes (Other)
  Sender: FDA-Public Use
  Company Number: CA-AMGEN-CANSP2014072466

PATIENT
  Age: 76 Year
  Sex: Female
  Weight: 54.88 kg

DRUGS (8)
  1. PROLIA [Suspect]
     Active Substance: DENOSUMAB
     Indication: OSTEOPOROSIS POSTMENOPAUSAL
     Dosage: 60 MG/ML, UNK
     Route: 065
     Dates: start: 20131009
  2. CALCIUM [Concomitant]
     Active Substance: CALCIUM
     Dosage: UNK
  3. NPLATE [Concomitant]
     Active Substance: ROMIPLOSTIM
     Indication: PLATELET COUNT DECREASED
     Dosage: UNK, FOUR TIMES A MONTH
     Route: 065
  4. VITAMIN D [Concomitant]
     Active Substance: CHOLECALCIFEROL
     Dosage: UNK
  5. VITAMIN C [Concomitant]
     Active Substance: ASCORBIC ACID
     Dosage: UNK
  6. VITAMIN B12 [Concomitant]
     Active Substance: CYANOCOBALAMIN
     Dosage: UNK
  7. BEBE [Concomitant]
     Dosage: UNK
  8. ASA [Concomitant]
     Active Substance: ASPIRIN
     Dosage: UNK

REACTIONS (6)
  - Erythema [Unknown]
  - Burning sensation [Not Recovered/Not Resolved]
  - Neoplasm malignant [Unknown]
  - Feeling hot [Not Recovered/Not Resolved]
  - Dry throat [Unknown]
  - Rash [Unknown]

NARRATIVE: CASE EVENT DATE: 201506
